FAERS Safety Report 6558000-1 (Version None)
Quarter: 2010Q1

REPORT INFORMATION
  Report Type: 
  Country: None (occurrence: None)
  Receive Date: 20100129
  Receipt Date: 20100119
  Transmission Date: 20100710
  Serious: Yes (Hospitalization)
  Sender: FDA-Public Use
  Company Number: IT-ELI_LILLY_AND_COMPANY-IT201001003924

PATIENT
  Sex: Male

DRUGS (5)
  1. CYMBALTA [Suspect]
     Indication: DEPRESSION
     Dosage: 60 MG, DAILY (1/D)
     Route: 048
     Dates: start: 20090101, end: 20091216
  2. ZYPREXA [Suspect]
     Indication: DEPRESSION
     Dosage: 1 D/F, DAILY (1/D)
     Route: 048
     Dates: start: 20090101, end: 20091218
  3. FLUVOXAMINE MALEATE [Concomitant]
     Indication: DEPRESSION
     Dosage: 50 MG, DAILY (1/D)
     Route: 048
     Dates: start: 20090101, end: 20091216
  4. RIVOTRIL [Concomitant]
     Indication: DEPRESSION
     Dosage: 0.5 MG, DAILY (1/D)
     Route: 048
     Dates: start: 20090101, end: 20091216
  5. ASPIRIN [Concomitant]
     Indication: PROPHYLAXIS
     Dosage: 100 MG, UNK
     Route: 048
     Dates: start: 20091101, end: 20091216

REACTIONS (4)
  - AGITATION [None]
  - CONFUSIONAL STATE [None]
  - MUSCLE RIGIDITY [None]
  - TREMOR [None]
